FAERS Safety Report 25929003 (Version 1)
Quarter: 2025Q4

REPORT INFORMATION
  Report Type: Spontaneous
  Country: EU (occurrence: EU)
  Receive Date: 20251016
  Receipt Date: 20251016
  Transmission Date: 20260118
  Serious: Yes (Other)
  Sender: RANBAXY
  Company Number: EU-MINISAL02-1046001

PATIENT
  Age: 68 Year
  Sex: Female
  Weight: 46 kg

DRUGS (3)
  1. OXALIPLATIN [Suspect]
     Active Substance: OXALIPLATIN
     Indication: Oesophageal adenocarcinoma
     Dosage: 73 MILLIGRAM, UNK
     Route: 042
     Dates: start: 20250514, end: 20250514
  2. NIVOLUMAB [Suspect]
     Active Substance: NIVOLUMAB
     Indication: Oesophageal adenocarcinoma
     Dosage: 240 MILLIGRAM, UNK
     Route: 042
     Dates: start: 20250514, end: 20250514
  3. FLUOROURACIL [Suspect]
     Active Substance: FLUOROURACIL
     Indication: Oesophageal adenocarcinoma
     Dosage: 2088 MILLIGRAM, UNK
     Route: 042
     Dates: start: 20250514, end: 20250514

REACTIONS (4)
  - Loss of consciousness [Recovered/Resolved]
  - Constipation [Recovering/Resolving]
  - Dry mouth [Recovering/Resolving]
  - Blood thyroid stimulating hormone increased [Unknown]

NARRATIVE: CASE EVENT DATE: 20250516
